FAERS Safety Report 9213297 (Version 5)
Quarter: 2014Q2

REPORT INFORMATION
  Report Type: Report from Study
  Country: US (occurrence: US)
  Receive Date: 20130405
  Receipt Date: 20140428
  Transmission Date: 20141212
  Serious: Yes (Hospitalization)
  Sender: FDA-Public Use
  Company Number: PHHY2013US031788

PATIENT
  Age: 54 Year
  Sex: Female
  Weight: 72.2 kg

DRUGS (4)
  1. EVEROLIMUS [Suspect]
     Indication: PANCREATIC NEUROENDOCRINE TUMOUR
     Dosage: 10 MG, QD
     Route: 048
     Dates: start: 20121016, end: 20140304
  2. OCTREOTIDE [Suspect]
     Indication: PANCREATIC NEUROENDOCRINE TUMOUR
     Dosage: 30 MG ONCE IN FOUR WEEKS
     Route: 030
     Dates: start: 20121016, end: 20140225
  3. BEVACIZUMAB [Suspect]
     Indication: PANCREATIC NEUROENDOCRINE TUMOUR
     Dosage: 10 MG/KG, DAY 1 AND 15 TWICE A WEEK,
     Route: 042
     Dates: start: 20121016, end: 20140225
  4. NOVOLOG [Concomitant]

REACTIONS (15)
  - Musculoskeletal pain [Unknown]
  - Abdominal pain [Recovered/Resolved]
  - Hepatic pain [Recovered/Resolved]
  - Nausea [Unknown]
  - Vomiting [Unknown]
  - Gastritis [Unknown]
  - Cough [Unknown]
  - Dyspnoea [Unknown]
  - Hyperglycaemia [Recovered/Resolved with Sequelae]
  - Blood glucose increased [Unknown]
  - Delirium [Recovered/Resolved with Sequelae]
  - Hepatic failure [Recovered/Resolved with Sequelae]
  - Frequent bowel movements [Unknown]
  - Back pain [Unknown]
  - Pain in extremity [Unknown]
